FAERS Safety Report 4519297-2 (Version None)
Quarter: 2004Q4

REPORT INFORMATION
  Report Type: 
  Country: None (occurrence: None)
  Receive Date: 20041201
  Receipt Date: 20041117
  Transmission Date: 20050328
  Serious: Yes (Hospitalization, Other)
  Sender: FDA-Public Use
  Company Number: 2004094373

PATIENT
  Sex: Male

DRUGS (2)
  1. ALPRAZOLAM [Suspect]
     Indication: ANXIETY
     Dosage: ORAL
     Route: 048
     Dates: start: 20010101
  2. ALPRAZOLAM [Suspect]
     Indication: DEPRESSION
     Dosage: ORAL
     Route: 048
     Dates: start: 20010101

REACTIONS (22)
  - AGGRESSION [None]
  - ANGER [None]
  - ANXIETY [None]
  - APHASIA [None]
  - BRAIN DAMAGE [None]
  - CRYING [None]
  - DECREASED APPETITE [None]
  - DEPENDENCE [None]
  - DEPRESSION [None]
  - DYSPNOEA [None]
  - GASTROOESOPHAGEAL REFLUX DISEASE [None]
  - HALLUCINATION [None]
  - HEADACHE [None]
  - HYPERSENSITIVITY [None]
  - MUSCLE ATROPHY [None]
  - NASAL SEPTUM DEVIATION [None]
  - NERVOUS SYSTEM DISORDER [None]
  - OESOPHAGEAL CARCINOMA [None]
  - PAIN [None]
  - SINUS DISORDER [None]
  - SOCIAL AVOIDANT BEHAVIOUR [None]
  - SUICIDAL IDEATION [None]
